FAERS Safety Report 7381728-0 (Version None)
Quarter: 2011Q1

REPORT INFORMATION
  Report Type: 
  Country: None (occurrence: None)
  Receive Date: 20110329
  Receipt Date: 20110322
  Transmission Date: 20110831
  Serious: Yes (Other)
  Sender: FDA-Public Use
  Company Number: US-ASTRAZENECA-2011SE11518

PATIENT
  Age: 39 Year
  Sex: Female
  Weight: 107 kg

DRUGS (3)
  1. OMEPRAZOLE [Suspect]
     Dosage: OMEPRAZOLE
     Route: 048
  2. OMEPRAZOLE [Suspect]
     Dosage: PRILOSEC
     Route: 048
  3. PRILOSEC OTC [Suspect]
     Route: 048

REACTIONS (9)
  - CHEST PAIN [None]
  - DYSPEPSIA [None]
  - CYSTIC FIBROSIS [None]
  - THROAT IRRITATION [None]
  - URTICARIA [None]
  - WEIGHT DECREASED [None]
  - TRANSIENT ISCHAEMIC ATTACK [None]
  - CHEST DISCOMFORT [None]
  - DRUG EFFECT DECREASED [None]
